FAERS Safety Report 14944993 (Version 1)
Quarter: 2018Q2

REPORT INFORMATION
  Report Type: Spontaneous
  Country: GB (occurrence: GB)
  Receive Date: 20180529
  Receipt Date: 20180529
  Transmission Date: 20180711
  Serious: Yes (Other)
  Sender: FDA-Public Use
  Company Number: GB-TEVA-2018-GB-898616

PATIENT
  Age: 26 Year
  Sex: Female
  Weight: 69.85 kg

DRUGS (2)
  1. RIGEVIDON [Concomitant]
     Active Substance: ETHINYL ESTRADIOL\LEVONORGESTREL
     Route: 065
  2. TRIMETHOPRIM TABLETS 100 MG [Suspect]
     Active Substance: TRIMETHOPRIM
     Indication: URINARY TRACT INFECTION
     Route: 048
     Dates: start: 20180317, end: 20180323

REACTIONS (8)
  - Headache [Unknown]
  - Rash scarlatiniform [Unknown]
  - Pruritus [Unknown]
  - Influenza [Recovering/Resolving]
  - Pyrexia [Unknown]
  - Feeling cold [Unknown]
  - Myalgia [Unknown]
  - Dermatitis allergic [Not Recovered/Not Resolved]

NARRATIVE: CASE EVENT DATE: 20180320
